FAERS Safety Report 18410765 (Version 1)
Quarter: 2020Q4

REPORT INFORMATION
  Report Type: Spontaneous
  Country: US (occurrence: US)
  Receive Date: 20201021
  Receipt Date: 20201021
  Transmission Date: 20210114
  Serious: Yes (Other)
  Sender: FDA-Public Use
  Company Number: US-TEVA-2020-US-1840687

PATIENT
  Sex: Male

DRUGS (13)
  1. DILAUDID [Suspect]
     Active Substance: HYDROMORPHONE HYDROCHLORIDE
     Route: 065
  2. MS CONTIN [Suspect]
     Active Substance: MORPHINE SULFATE
     Route: 065
  3. OXYCODONE AND ACETAMINOPHEN [Suspect]
     Active Substance: ACETAMINOPHEN\OXYCODONE HYDROCHLORIDE
     Route: 065
  4. HYDROMORPHONE IMMEDIATE-RELEASE TABLETS [Suspect]
     Active Substance: HYDROMORPHONE
     Dosage: HYDROMORPHONE IMMEDIATE-RELEASE TABLETS
     Route: 065
  5. OXYCONTIN [Suspect]
     Active Substance: OXYCODONE HYDROCHLORIDE
     Route: 065
  6. BUTRANS [Suspect]
     Active Substance: BUPRENORPHINE
     Route: 065
  7. OXYCODONE EXTENDED-RELEASE TABLETS [Suspect]
     Active Substance: OXYCODONE
     Dosage: OXYCODONE EXTENDED-RELEASE TABLETS
     Route: 065
  8. BUPRENORPHINE TRANSDERMAL [Suspect]
     Active Substance: BUPRENORPHINE
     Route: 062
  9. VICODIN [Suspect]
     Active Substance: ACETAMINOPHEN\HYDROCODONE BITARTRATE
     Route: 065
  10. RYZOLT [Suspect]
     Active Substance: TRAMADOL HYDROCHLORIDE
     Route: 065
  11. OXYIR [Suspect]
     Active Substance: OXYCODONE HYDROCHLORIDE
     Route: 065
  12. MORPHINE EXTENDED-RELEASE TABLETS [Suspect]
     Active Substance: MORPHINE SULFATE
     Dosage: EXTENDED RELEASE TABLETS
     Route: 065
  13. TRAMADOL. [Suspect]
     Active Substance: TRAMADOL
     Route: 065

REACTIONS (3)
  - Loss of employment [Unknown]
  - Dependence [Unknown]
  - Substance use disorder [Unknown]
